FAERS Safety Report 7211213-8 (Version None)
Quarter: 2011Q1

REPORT INFORMATION
  Report Type: 
  Country: None (occurrence: None)
  Receive Date: 20110105
  Receipt Date: 20101231
  Transmission Date: 20110831
  Serious: Yes (Death)
  Sender: FDA-Public Use
  Company Number: US-ASTRAZENECA-2011SE00267

PATIENT
  Age: 56 Year
  Sex: Female

DRUGS (6)
  1. DULOXETIME HYDROCHLORIDE [Suspect]
     Route: 048
  2. CLONAZEPAM [Suspect]
     Route: 048
  3. ESCITALOPRAM [Suspect]
     Route: 048
  4. METOPROLOL TARTRATE [Suspect]
     Route: 048
  5. QUETIAPINE [Suspect]
     Route: 048
  6. METOCLOPRAMIDE [Suspect]
     Route: 048

REACTIONS (2)
  - TOXICITY TO VARIOUS AGENTS [None]
  - COMPLETED SUICIDE [None]
